FAERS Safety Report 8982874 (Version 1)
Quarter: 2012Q4

REPORT INFORMATION
  Report Type: 
  Country: US (occurrence: US)
  Receive Date: 20121212
  Receipt Date: 20121212
  Transmission Date: 20130627
  Serious: Yes (Death, Other)
  Sender: FDA-Public Use
  Company Number: US-ASTELLAS-1114309

PATIENT
  Sex: Female

DRUGS (11)
  1. TARCEVA [Suspect]
     Indication: MALIGNANT RESPIRATORY TRACT NEOPLASM
     Route: 048
     Dates: start: 20050210, end: 20050228
  2. TARCEVA [Suspect]
     Route: 048
     Dates: start: 20050515, end: 20050922
  3. TARCEVA [Suspect]
     Route: 065
     Dates: start: 20051028
  4. TARCEVA [Suspect]
     Route: 065
     Dates: start: 20060118
  5. TARCEVA [Suspect]
     Route: 065
     Dates: start: 20060223
  6. TARCEVA [Suspect]
     Route: 065
     Dates: end: 20060418
  7. NEURONTIN [Concomitant]
  8. MYSOLINE [Concomitant]
  9. QUINIDINE [Concomitant]
  10. TOPROL [Concomitant]
  11. PLAVIX [Concomitant]

REACTIONS (7)
  - Malaise [Unknown]
  - Metastases to central nervous system [Unknown]
  - Metastases to liver [Unknown]
  - Diarrhoea [Unknown]
  - Nausea [Unknown]
  - Abdominal pain [Unknown]
  - Death [Fatal]
